FAERS Safety Report 9836942 (Version 1)
Quarter: 2013Q4

REPORT INFORMATION
  Report Type: Spontaneous
  Country: US (occurrence: None)
  Receive Date: 20131120
  Receipt Date: 20131120
  Transmission Date: 20140711
  Serious: Yes (Other)
  Sender: FDA-Public Use
  Company Number: 1000048912

PATIENT
  Sex: Female

DRUGS (3)
  1. VIIBRYD [Suspect]
  2. PERCOCET (OXYCODONE ACETAMINOPHEN) (OXYCODONE ACETAMINOPHEN) [Concomitant]
  3. OXYCONTIN (OXYCODONE HYDROCHLORIDE) (OXYCODONE HYDROCHLORIDE) [Concomitant]

REACTIONS (1)
  - Drug screen positive [None]
